FAERS Safety Report 26128624 (Version 2)
Quarter: 2025Q4

REPORT INFORMATION
  Report Type: Report from Study
  Country: US (occurrence: US)
  Receive Date: 20251207
  Receipt Date: 20251214
  Transmission Date: 20260118
  Serious: Yes (Other)
  Sender: ABBVIE
  Company Number: US-ABBVIE-6569418

PATIENT
  Age: 74 Year
  Sex: Male

DRUGS (3)
  1. VYALEV [Suspect]
     Active Substance: FOSCARBIDOPA\FOSLEVODOPA
     Indication: Parkinson^s disease
     Dosage: 24 HOUR INFUSION
     Route: 058
     Dates: start: 20250822
  2. RASAGILINE [Concomitant]
     Active Substance: RASAGILINE
     Indication: Parkinson^s disease
  3. DROXIDOPA [Concomitant]
     Active Substance: DROXIDOPA
     Indication: Hypotension

REACTIONS (6)
  - Deafness bilateral [Unknown]
  - On and off phenomenon [Recovering/Resolving]
  - Dyskinesia [Unknown]
  - Gait inability [Recovering/Resolving]
  - Movement disorder [Unknown]
  - Therapeutic product effect delayed [Unknown]

NARRATIVE: CASE EVENT DATE: 20250101
